FAERS Safety Report 7573582-9 (Version None)
Quarter: 2011Q2

REPORT INFORMATION
  Report Type: 
  Country: None (occurrence: None)
  Receive Date: 20110627
  Receipt Date: 20110617
  Transmission Date: 20111010
  Serious: Yes (Hospitalization, Other)
  Sender: FDA-Public Use
  Company Number: BR-US-EMD SERONO, INC.-7047113

PATIENT
  Sex: Female

DRUGS (6)
  1. REBIF [Suspect]
     Dates: start: 20100701
  2. REBIF [Suspect]
     Indication: RELAPSING-REMITTING MULTIPLE SCLEROSIS
     Dates: start: 20091101, end: 20100701
  3. METHOTREXATE [Concomitant]
  4. MESTINON [Concomitant]
  5. OMEPRAZOLE [Concomitant]
  6. PHENOBARBITAL TAB [Concomitant]

REACTIONS (7)
  - FIBROSIS [None]
  - RESPIRATORY ARREST [None]
  - INJECTION SITE ERYTHEMA [None]
  - CONVULSION [None]
  - SINUSITIS [None]
  - URINARY TRACT INFECTION [None]
  - CONTUSION [None]
